FAERS Safety Report 18327851 (Version 21)
Quarter: 2025Q1

REPORT INFORMATION
  Report Type: Report from Study
  Country: US (occurrence: US)
  Receive Date: 20200929
  Receipt Date: 20250321
  Transmission Date: 20250408
  Serious: Yes (Other)
  Sender: TAKEDA
  Company Number: US-SHIRE-US202031719

PATIENT
  Age: 40 Year
  Sex: Female
  Weight: 104 kg

DRUGS (18)
  1. HUMAN IMMUNOGLOBULIN G [Suspect]
     Active Substance: HUMAN IMMUNOGLOBULIN G
     Indication: Immune reconstitution inflammatory syndrome
     Dosage: 16 GRAM, 1/WEEK
     Dates: start: 20170815
  2. HUMAN IMMUNOGLOBULIN G [Suspect]
     Active Substance: HUMAN IMMUNOGLOBULIN G
     Indication: Immunodeficiency common variable
     Dosage: 16 GRAM, 1/WEEK
     Dates: start: 20170929
  3. FEXOFENADINE HYDROCHLORIDE [Concomitant]
     Active Substance: FEXOFENADINE HYDROCHLORIDE
  4. ACETAMINOPHEN [Concomitant]
     Active Substance: ACETAMINOPHEN
  5. ZYRTEC [Concomitant]
     Active Substance: CETIRIZINE HYDROCHLORIDE
  6. PLAQUENIL [Concomitant]
     Active Substance: HYDROXYCHLOROQUINE SULFATE
  7. SINGULAIR [Concomitant]
     Active Substance: MONTELUKAST SODIUM
  8. ESTRACE [Concomitant]
     Active Substance: ESTRADIOL
  9. VITAMINS [Concomitant]
     Active Substance: VITAMINS
  10. LORATADINE [Concomitant]
     Active Substance: LORATADINE
  11. DIPHENHYDRAMINE HYDROCHLORIDE [Concomitant]
     Active Substance: DIPHENHYDRAMINE HYDROCHLORIDE
  12. GABAPENTIN [Concomitant]
     Active Substance: GABAPENTIN
  13. SYNTHROID [Concomitant]
     Active Substance: LEVOTHYROXINE SODIUM
  14. DIPHENHYDRAMINE [Concomitant]
     Active Substance: DIPHENHYDRAMINE
  15. EPINEPHRINE [Concomitant]
     Active Substance: EPINEPHRINE
  16. TYLENOL EXTRA STRENGTH [Concomitant]
     Active Substance: ACETAMINOPHEN
  17. LIDOCAINE [Concomitant]
     Active Substance: LIDOCAINE
  18. ALLEGRA [Concomitant]
     Active Substance: FEXOFENADINE HYDROCHLORIDE

REACTIONS (13)
  - COVID-19 pneumonia [Unknown]
  - COVID-19 [Unknown]
  - Mastitis [Unknown]
  - Sinusitis [Unknown]
  - Upper respiratory tract infection [Unknown]
  - Respiratory syncytial virus infection [Not Recovered/Not Resolved]
  - Gastroenteritis viral [Unknown]
  - Weight fluctuation [Unknown]
  - Pregnancy [Recovered/Resolved]
  - Insurance issue [Unknown]
  - Nasopharyngitis [Not Recovered/Not Resolved]
  - Product dose omission issue [Unknown]
  - Influenza [Recovered/Resolved]

NARRATIVE: CASE EVENT DATE: 20221208
